FAERS Safety Report 8536176-4 (Version None)
Quarter: 2012Q3

REPORT INFORMATION
  Report Type: 
  Country: None (occurrence: None)
  Receive Date: 20120725
  Receipt Date: 20120711
  Transmission Date: 20120928
  Serious: Yes (Other)
  Sender: FDA-Public Use
  Company Number: DK-ELI_LILLY_AND_COMPANY-DK201207006317

PATIENT
  Sex: Female

DRUGS (13)
  1. PINEX [Concomitant]
     Indication: PAIN
     Dosage: 500 MG, PRN
  2. ZYPREXA [Suspect]
     Dosage: 5 MG, QD
  3. VALPROIC ACID [Concomitant]
     Dosage: 4 DF, EACH EVENING
     Dates: start: 20091012
  4. SERDOLECT [Concomitant]
     Indication: MENTAL DISORDER
     Dosage: 12 MG, UNK
     Dates: start: 20091211
  5. OXAZEPAM [Concomitant]
     Indication: SEDATIVE THERAPY
     Dosage: 15 MG, UNK
     Dates: start: 20110704
  6. ZYPREXA [Suspect]
     Dosage: 10 MG, QD
     Dates: start: 20110601
  7. SERDOLECT [Concomitant]
     Dosage: 4 MG, UNK
     Dates: start: 20110929
  8. ZYPREXA [Suspect]
     Dosage: 17.5 MG, QD
     Dates: start: 20110815
  9. SIMVASTATIN [Concomitant]
     Indication: HYPERCHOLESTEROLAEMIA
     Dosage: 40 MG, UNK
     Dates: start: 20100809
  10. ANTABUSE [Concomitant]
     Indication: ALCOHOL ABUSE
     Dosage: 100 MG, QD
     Dates: start: 20100810
  11. ZYPREXA [Suspect]
     Indication: MENTAL DISORDER
     Dosage: 7.5 MG, QD
     Dates: start: 20110601
  12. VALPROIC ACID [Concomitant]
     Indication: MOOD SWINGS
     Dosage: 2 DF, EACH MORNING
     Dates: start: 20091012
  13. PANTOPRAZOLE [Concomitant]
     Indication: GASTRIC PH DECREASED
     Dosage: 40 MG, UNK
     Dates: start: 20120511

REACTIONS (9)
  - WEIGHT INCREASED [None]
  - HYPERSOMNIA [None]
  - CARDIAC DISORDER [None]
  - ASTHENOPIA [None]
  - ANGER [None]
  - BLOOD CHOLESTEROL INCREASED [None]
  - QUALITY OF LIFE DECREASED [None]
  - MUSCULAR WEAKNESS [None]
  - HYPOTONIA [None]
